FAERS Safety Report 6177652-1 (Version None)
Quarter: 2009Q2

REPORT INFORMATION
  Report Type: 
  Country: None (occurrence: None)
  Receive Date: 20090504
  Receipt Date: 20090422
  Transmission Date: 20091009
  Serious: Yes (Death, Other)
  Sender: FDA-Public Use
  Company Number: EG-PFIZER INC-2007103905

PATIENT

DRUGS (23)
  1. VORICONAZOLE [Suspect]
     Indication: INFECTION PROPHYLAXIS
     Dosage: 475 MG, 2X/DAY
     Route: 042
     Dates: start: 20071125, end: 20071127
  2. VORICONAZOLE [Suspect]
     Dosage: 320 MG, 2X/DAY
     Route: 042
     Dates: start: 20071202, end: 20080107
  3. VORICONAZOLE [Suspect]
     Dosage: 200 MG, 2X/DAY
     Route: 048
     Dates: start: 20071128, end: 20071201
  4. CYCLOSPORINE [Concomitant]
     Route: 042
     Dates: start: 20071124, end: 20071203
  5. CYCLOSPORINE [Concomitant]
     Dates: start: 20071216
  6. MYCOPHENOLATE MOFETIL [Concomitant]
     Route: 048
     Dates: start: 20071125, end: 20071226
  7. ACYCLOVIR [Concomitant]
     Route: 042
     Dates: start: 20071116
  8. RANITIDINE [Concomitant]
     Route: 042
     Dates: start: 20071115, end: 20071128
  9. CEFOPERAZONE W/SULBACTAM [Concomitant]
     Route: 042
     Dates: start: 20071128, end: 20071201
  10. AMIKACIN [Concomitant]
     Route: 042
     Dates: start: 20071128, end: 20071201
  11. VANCOMYCIN HCL [Concomitant]
     Route: 042
     Dates: start: 20071201
  12. VANCOMYCIN HCL [Concomitant]
     Route: 048
     Dates: start: 20071209, end: 20071216
  13. VANCOMYCIN HCL [Concomitant]
     Route: 042
     Dates: start: 20071221
  14. LEVOFLOXACIN [Concomitant]
     Route: 042
     Dates: start: 20071201, end: 20071211
  15. METRONIDAZOLE [Concomitant]
     Route: 042
     Dates: start: 20071202, end: 20071210
  16. DOPAMINE HCL [Concomitant]
     Route: 042
     Dates: start: 20071202, end: 20071208
  17. METHYLPREDNISOLONE 4MG TAB [Concomitant]
     Route: 042
     Dates: start: 20071203
  18. SILYMARIN [Concomitant]
     Route: 048
     Dates: start: 20071207, end: 20071225
  19. URSODIOL [Concomitant]
     Route: 048
     Dates: start: 20071207
  20. PANTOPRAZOLE SODIUM [Concomitant]
     Route: 042
     Dates: start: 20071128
  21. IMIPENEM [Concomitant]
     Route: 042
     Dates: start: 20071201
  22. OCTREOTIDE ACETATE [Concomitant]
     Route: 058
     Dates: start: 20071225
  23. ALL OTHER THERAPEUTIC PRODUCTS [Concomitant]
     Route: 042
     Dates: start: 20071218

REACTIONS (2)
  - ACUTE GRAFT VERSUS HOST DISEASE [None]
  - HEPATIC FUNCTION ABNORMAL [None]
